FAERS Safety Report 8353543-2 (Version None)
Quarter: 2012Q2

REPORT INFORMATION
  Report Type: 
  Country: None (occurrence: None)
  Receive Date: 20120511
  Receipt Date: 20110527
  Transmission Date: 20120825
  Serious: No
  Sender: FDA-Public Use
  Company Number: US-GLAXOSMITHKLINE-A0929518A

PATIENT
  Age: 85 Year
  Sex: Female

DRUGS (16)
  1. ALDACTONE [Concomitant]
  2. BIAXIN [Concomitant]
  3. GABAPENTIN [Concomitant]
  4. BYSTOLIC [Concomitant]
  5. SYMBICORT [Concomitant]
  6. FENTANYL CITRATE [Concomitant]
  7. PROTONIX [Concomitant]
  8. ALBUTEROL [Concomitant]
     Route: 055
  9. LIDODERM [Concomitant]
  10. XANAX [Concomitant]
  11. PREDNISONE [Concomitant]
  12. FOLIC ACID [Concomitant]
  13. ULTRAM [Concomitant]
  14. MULTI-VITAMIN [Concomitant]
  15. VITAMIN B-12 [Concomitant]
  16. TYKERB [Suspect]
     Indication: BREAST CANCER
     Dosage: 5TAB PER DAY
     Route: 048
     Dates: start: 20110429, end: 20110526

REACTIONS (3)
  - VOMITING [None]
  - DIARRHOEA [None]
  - NAUSEA [None]
